FAERS Safety Report 7362001-3 (Version None)
Quarter: 2011Q1

REPORT INFORMATION
  Report Type: 
  Country: None (occurrence: None)
  Receive Date: 20110318
  Receipt Date: 20110315
  Transmission Date: 20110831
  Serious: Yes (Life-Threatening, Other)
  Sender: FDA-Public Use
  Company Number: CZ-ELI_LILLY_AND_COMPANY-CZ201103005021

PATIENT
  Sex: Male

DRUGS (9)
  1. VALSARTAN/HYDROCHLOORTHIAZIDE [Concomitant]
     Dosage: 160 MG, UNK
     Route: 048
  2. EXENATIDE [Suspect]
     Indication: TYPE 2 DIABETES MELLITUS
     Dosage: 10 UG, 2/D
     Route: 058
     Dates: start: 20110112
  3. TENAXUM [Concomitant]
     Dosage: 2 MG, UNK
     Route: 048
  4. LUSOPRESS [Concomitant]
     Dosage: 20 MG, UNK
     Route: 048
  5. HELICID [Concomitant]
     Dosage: 20 MG, UNK
     Route: 048
  6. EXENATIDE [Suspect]
     Dosage: 10 UG, 2/D
     Route: 058
     Dates: start: 20110201, end: 20110312
  7. AMARYL [Concomitant]
     Indication: DIABETES MELLITUS
     Dosage: 2 MG, UNK
     Route: 048
  8. SIOFOR [Concomitant]
     Indication: DIABETES MELLITUS
     Dosage: 3000 MG, UNK
     Route: 048
  9. SECTRAL [Concomitant]
     Dosage: 200 MG, UNK
     Route: 048

REACTIONS (2)
  - ANAPHYLACTIC SHOCK [None]
  - ARRHYTHMIA [None]
